FAERS Safety Report 9461452 (Version 1)
Quarter: 2013Q3

REPORT INFORMATION
  Report Type: Spontaneous
  Country: US (occurrence: None)
  Receive Date: 20130814
  Receipt Date: 20130814
  Transmission Date: 20140515
  Serious: Yes (Disabling)
  Sender: FDA-Public Use
  Company Number: None

PATIENT
  Age: 37 Year
  Sex: Male
  Weight: 117.94 kg

DRUGS (2)
  1. HYDROCORTISONE [Suspect]
     Indication: PRURITUS
     Dosage: 1 SQUIRT ONCE DAILY APPLIED TO SURFACE, USUALLY THE SKIN
     Dates: start: 20130717, end: 20130717
  2. DESONIDE [Suspect]
     Indication: PRURITUS
     Dates: start: 20130813, end: 20130813

REACTIONS (1)
  - Breast swelling [None]
